FAERS Safety Report 14033827 (Version 6)
Quarter: 2025Q4

REPORT INFORMATION
  Report Type: Spontaneous
  Country: EU (occurrence: EU)
  Receive Date: 20171003
  Receipt Date: 20251103
  Transmission Date: 20260117
  Serious: Yes (Hospitalization, Other)
  Sender: NOVARTIS
  Company Number: EU-EMA-DD-20171204-SANTOSHRP-114624

PATIENT
  Age: 47 Year
  Sex: Male

DRUGS (3)
  1. SANDOSTATIN LAR DEPOT [Suspect]
     Active Substance: OCTREOTIDE ACETATE
     Indication: Carcinoid tumour
     Dosage: UNK UNK, QMO (EVERY 4TH WEEKS)
     Route: 030
  2. SANDOSTATIN LAR DEPOT [Suspect]
     Active Substance: OCTREOTIDE ACETATE
     Indication: Carcinoid syndrome
  3. SANDOSTATIN LAR DEPOT [Suspect]
     Active Substance: OCTREOTIDE ACETATE

REACTIONS (3)
  - Sepsis [Recovered/Resolved with Sequelae]
  - Injection site infection [Recovered/Resolved with Sequelae]
  - Needle issue [Unknown]

NARRATIVE: CASE EVENT DATE: 20170612
